FAERS Safety Report 9470859 (Version 1)
Quarter: 2013Q3

REPORT INFORMATION
  Report Type: Spontaneous
  Country: US (occurrence: US)
  Receive Date: 20130822
  Receipt Date: 20130822
  Transmission Date: 20140515
  Serious: Yes (Other)
  Sender: FDA-Public Use
  Company Number: PHEH2013US017801

PATIENT
  Age: 82 Year
  Sex: Female

DRUGS (7)
  1. EXELON PATCH [Suspect]
     Dosage: 13.3 MG, DAILY
     Route: 062
     Dates: start: 20130130, end: 20130816
  2. EXELON PATCH [Suspect]
     Dosage: APPLIED TOTAL OF FOUR PATCHES
     Dates: start: 20130816
  3. VITAMIN D [Concomitant]
     Dosage: UNK UKN, UNK
  4. RISPERDAL [Concomitant]
     Dosage: 25 MG, UNK
  5. ZOLOFT [Concomitant]
     Dosage: 50 MG, UNK
  6. REMERON [Concomitant]
     Dosage: 15 MG, UNK
  7. DESYREL [Concomitant]
     Dosage: 50 MG, UNK

REACTIONS (5)
  - Unresponsive to stimuli [Recovered/Resolved]
  - Blood pressure increased [Recovered/Resolved]
  - Balance disorder [Recovered/Resolved]
  - Moaning [Recovered/Resolved]
  - Drug administration error [Recovered/Resolved]
